FAERS Safety Report 4423710-9 (Version None)
Quarter: 2004Q3

REPORT INFORMATION
  Report Type: 
  Country: None (occurrence: None)
  Receive Date: 20040714
  Receipt Date: 20040429
  Transmission Date: 20050211
  Serious: Yes (Other)
  Sender: FDA-Public Use
  Company Number: HQWYE721305MAY04

PATIENT
  Age: 53 Year
  Sex: Female
  Weight: 90.8 kg

DRUGS (3)
  1. ALAVERT [Suspect]
     Indication: HYPERSENSITIVITY
     Dosage: 1 TABLET 1X PER 1 DAY, ORAL
     Route: 048
     Dates: start: 20040424, end: 20040428
  2. HYDROCODONE BITARTRATE [Concomitant]
  3. CELEBREX [Concomitant]

REACTIONS (1)
  - DIARRHOEA [None]
